FAERS Safety Report 9698550 (Version 1)
Quarter: 2013Q4

REPORT INFORMATION
  Report Type: Spontaneous
  Country: GB (occurrence: GB)
  Receive Date: 20131120
  Receipt Date: 20131120
  Transmission Date: 20140711
  Serious: Yes (Hospitalization, Disabling, Other)
  Sender: FDA-Public Use
  Company Number: GB-PFIZER INC-2013326376

PATIENT
  Age: 53 Year
  Sex: Female
  Weight: 80 kg

DRUGS (4)
  1. SALAZOPYRIN [Suspect]
     Indication: RHEUMATOID ARTHRITIS
     Dosage: 500 MG, UNK STARTING DOSE 500MG DAILY INCREASING DOSE WEEKLY FROM 1TAB DAILY TO 4 TABLETS
     Route: 048
     Dates: start: 20130928, end: 20131019
  2. HYDROXYCHLOROQUINE [Suspect]
     Indication: RHEUMATOID ARTHRITIS
     Dosage: 200 MG, 2X/DAY
     Route: 048
     Dates: start: 20130928, end: 20131019
  3. NAPROXEN SODIUM [Concomitant]
     Dosage: UNK
  4. OMEPRAZOLE [Concomitant]
     Dosage: UNK

REACTIONS (5)
  - Erythema multiforme [Recovering/Resolving]
  - Blister [Not Recovered/Not Resolved]
  - Pyrexia [Unknown]
  - Tachycardia [Unknown]
  - Rash [Unknown]
